FAERS Safety Report 22965073 (Version 3)
Quarter: 2023Q4

REPORT INFORMATION
  Report Type: Report from Study
  Country: US (occurrence: US)
  Receive Date: 20230921
  Receipt Date: 20231015
  Transmission Date: 20240110
  Serious: Yes (Hospitalization)
  Sender: FDA-Public Use
  Company Number: US-JNJFOC-20230937787

PATIENT
  Sex: Male
  Weight: 88.3 kg

DRUGS (3)
  1. INFLIXIMAB [Suspect]
     Active Substance: INFLIXIMAB
     Indication: Crohn^s disease
     Dosage: DATE OF LAST ADMINISTRATION: 19/FEB/2013
     Route: 041
     Dates: start: 20121122
  2. INFLIXIMAB [Suspect]
     Active Substance: INFLIXIMAB
     Dosage: DATE OF LAST ADMINISTRATION: 04/AUG/2013
     Route: 041
     Dates: start: 20130531
  3. HUMIRA [Concomitant]
     Active Substance: ADALIMUMAB
     Dosage: DATE OF LAST ADMINISTRATION: 19/AUG/2023
     Dates: start: 20130818

REACTIONS (1)
  - Small intestinal obstruction [Recovered/Resolved with Sequelae]

NARRATIVE: CASE EVENT DATE: 20230821
